FAERS Safety Report 7463276-2 (Version None)
Quarter: 2011Q2

REPORT INFORMATION
  Report Type: 
  Country: None (occurrence: None)
  Receive Date: 20110506
  Receipt Date: 20110502
  Transmission Date: 20111010
  Serious: Yes (Hospitalization)
  Sender: FDA-Public Use
  Company Number: FR-ROCHE-775170

PATIENT
  Age: 46 Year
  Sex: Male

DRUGS (4)
  1. ROCEPHIN [Suspect]
     Route: 058
     Dates: start: 20110421
  2. ROCEPHIN [Suspect]
     Route: 042
     Dates: start: 20110417
  3. GENTAMICIN [Concomitant]
     Dates: start: 20110419, end: 20110421
  4. FLAGYL [Concomitant]
     Dates: start: 20110417, end: 20110419

REACTIONS (1)
  - INJECTION SITE NECROSIS [None]
